FAERS Safety Report 5934111-6 (Version None)
Quarter: 2008Q4

REPORT INFORMATION
  Report Type: 
  Country: None (occurrence: None)
  Receive Date: 20081029
  Receipt Date: 20081023
  Transmission Date: 20090506
  Serious: Yes (Life-Threatening, Hospitalization)
  Sender: FDA-Public Use
  Company Number: NL-WYE-G02416308

PATIENT
  Age: 42 Year
  Sex: Male

DRUGS (1)
  1. EFFEXOR XR [Suspect]
     Dosage: 75 MG WITH UNKNOWN FREQUENCY
     Route: 048

REACTIONS (1)
  - CARDIOMYOPATHY [None]
